FAERS Safety Report 7897558-7 (Version None)
Quarter: 2011Q4

REPORT INFORMATION
  Report Type: 
  Country: None (occurrence: None)
  Receive Date: 20111028
  Receipt Date: 20110717
  Transmission Date: 20120403
  Serious: Yes (Other)
  Sender: FDA-Public Use
  Company Number: PHHY2011US28440

PATIENT
  Age: 7 Year
  Sex: Male

DRUGS (1)
  1. TRILEPTAL [Suspect]
     Dosage: 60 MG/ML (300 MG/5 ML)

REACTIONS (3)
  - DRUG LEVEL DECREASED [None]
  - CONVULSION [None]
  - THERAPEUTIC RESPONSE DECREASED [None]
